FAERS Safety Report 18105635 (Version 1)
Quarter: 2020Q3

REPORT INFORMATION
  Report Type: Spontaneous
  Country: US (occurrence: US)
  Receive Date: 20200804
  Receipt Date: 20200804
  Transmission Date: 20201103
  Serious: Yes (Other)
  Sender: FDA-Public Use
  Company Number: US-SA-2020SA198080

PATIENT

DRUGS (1)
  1. DULCOLAX NOS [Suspect]
     Active Substance: BISACODYL OR DOCUSATE SODIUM

REACTIONS (9)
  - Feeding disorder [Unknown]
  - Presyncope [Unknown]
  - Tremor [Unknown]
  - Loss of consciousness [Unknown]
  - Asthenia [Unknown]
  - Abdominal pain [Unknown]
  - Hyperhidrosis [Unknown]
  - Feeling cold [Unknown]
  - Retching [Unknown]
